FAERS Safety Report 8015890-3 (Version None)
Quarter: 2011Q4

REPORT INFORMATION
  Report Type: 
  Country: None (occurrence: None)
  Receive Date: 20111230
  Receipt Date: 20111220
  Transmission Date: 20120403
  Serious: Yes (Death)
  Sender: FDA-Public Use
  Company Number: JP-PFIZER INC-2011308195

PATIENT
  Age: 78 Year
  Sex: Female

DRUGS (3)
  1. SULFAMETHOXAZOLE AND TRIMETHOPRIM [Suspect]
     Dosage: 12 G, 1X/DAY
  2. ZYVOX [Suspect]
     Indication: BRAIN ABSCESS
     Dosage: 1200 MG, 1X/DAY
  3. AMIKACIN [Concomitant]
     Dosage: 400 MG, 1X/DAY

REACTIONS (1)
  - PANCYTOPENIA [None]
